FAERS Safety Report 5113709-1 (Version None)
Quarter: 2006Q3

REPORT INFORMATION
  Report Type: 
  Country: None (occurrence: None)
  Receive Date: 20060921
  Receipt Date: 20060921
  Transmission Date: 20061208
  Serious: No
  Sender: FDA-Public Use
  Company Number: None

PATIENT
  Age: 67 Year
  Sex: Female

DRUGS (16)
  1. BACTRIM DS [Suspect]
     Indication: MYCOBACTERIUM AVIUM COMPLEX INFECTION
     Dosage: 2 TABLETS BID
     Dates: start: 20051219, end: 20060103
  2. BACTRIM DS [Suspect]
     Indication: PNEUMONIA
     Dosage: 2 TABLETS BID
     Dates: start: 20051219, end: 20060103
  3. ASPIRIN [Concomitant]
  4. SYNTHROID [Concomitant]
  5. NEURONTIN [Concomitant]
  6. CELLCEPT [Concomitant]
  7. MAG OXIDE [Concomitant]
  8. CALCIUM/VIT D [Concomitant]
  9. EPIVIR [Concomitant]
  10. CYA [Concomitant]
  11. COLACE [Concomitant]
  12. PEPCID [Concomitant]
  13. BUMEX [Concomitant]
  14. ALDACTONE [Concomitant]
  15. PREDNISONE TAB [Concomitant]
  16. INSULIN [Concomitant]

REACTIONS (2)
  - BLOOD CREATININE INCREASED [None]
  - RENAL IMPAIRMENT [None]
